FAERS Safety Report 10685526 (Version 2)
Quarter: 2015Q2

REPORT INFORMATION
  Report Type: Spontaneous
  Country: US (occurrence: US)
  Receive Date: 20141231
  Receipt Date: 20150406
  Transmission Date: 20150821
  Serious: Yes (Other)
  Sender: FDA-Public Use
  Company Number: US-BAYER-2014-191463

PATIENT
  Age: 37 Year
  Sex: Female
  Weight: 54.42 kg

DRUGS (1)
  1. MIRENA [Suspect]
     Active Substance: LEVONORGESTREL
     Dosage: 20 MCG/24HR, CONT
     Route: 015
     Dates: start: 200812, end: 201010

REACTIONS (7)
  - Medical device discomfort [None]
  - Injury [None]
  - Embedded device [None]
  - Infertility female [None]
  - Abdominal pain upper [None]
  - Off label use [None]
  - Emotional distress [None]

NARRATIVE: CASE EVENT DATE: 2008
